FAERS Safety Report 9326156 (Version 1)
Quarter: 2013Q2

REPORT INFORMATION
  Report Type: Spontaneous
  Country: US (occurrence: None)
  Receive Date: 20130603
  Receipt Date: 20130603
  Transmission Date: 20140414
  Serious: Yes (Hospitalization)
  Sender: FDA-Public Use
  Company Number: None

PATIENT
  Age: 81 Year
  Sex: Male
  Weight: 118 kg

DRUGS (1)
  1. OXYBUTYNIN [Suspect]
     Indication: URINARY INCONTINENCE
     Route: 048
     Dates: start: 20130207, end: 20130310

REACTIONS (4)
  - Dizziness [None]
  - Balance disorder [None]
  - Gait disturbance [None]
  - Presyncope [None]
